FAERS Safety Report 10087081 (Version 1)
Quarter: 2014Q2

REPORT INFORMATION
  Report Type: Spontaneous
  Country: US (occurrence: US)
  Receive Date: 20140418
  Receipt Date: 20140418
  Transmission Date: 20141212
  Serious: Yes (Other)
  Sender: FDA-Public Use
  Company Number: US-ELI_LILLY_AND_COMPANY-US201404002840

PATIENT
  Sex: Male

DRUGS (4)
  1. HUMULIN NPH [Suspect]
     Indication: DIABETES MELLITUS
     Dosage: 17 U, EACH MORNING
     Route: 065
     Dates: start: 2009
  2. HUMULIN NPH [Suspect]
     Dosage: 20 U, EACH EVENING
     Route: 065
     Dates: start: 2009
  3. GLIPIZIDE [Concomitant]
  4. WARFARIN [Concomitant]

REACTIONS (5)
  - Renal neoplasm [Not Recovered/Not Resolved]
  - Prostatomegaly [Unknown]
  - Memory impairment [Not Recovered/Not Resolved]
  - Blood glucose increased [Unknown]
  - Glycosylated haemoglobin increased [Unknown]
